FAERS Safety Report 21399572 (Version 1)
Quarter: 2022Q4

REPORT INFORMATION
  Report Type: Report from Study
  Country: US (occurrence: US)
  Receive Date: 20221001
  Receipt Date: 20221001
  Transmission Date: 20230112
  Serious: No
  Sender: FDA-Public Use
  Company Number: US-ABBVIE-22K-163-4385240-00

PATIENT
  Sex: Female

DRUGS (14)
  1. RINVOQ [Suspect]
     Active Substance: UPADACITINIB
     Indication: Rheumatoid arthritis
     Dosage: 15MG
     Route: 048
  2. MYCOPHENOLATE MOFETIL [Concomitant]
     Indication: Product used for unknown indication
  3. MYCOPHENOLIC ACID [Concomitant]
     Active Substance: MYCOPHENOLIC ACID
     Indication: Product used for unknown indication
  4. NAPROXEN [Concomitant]
     Active Substance: NAPROXEN
     Indication: Product used for unknown indication
  5. PREDNISONE [Concomitant]
     Active Substance: PREDNISONE
     Indication: Product used for unknown indication
  6. LEFLUNOMIDE [Concomitant]
     Active Substance: LEFLUNOMIDE
     Indication: Product used for unknown indication
  7. OXYCODONE [Concomitant]
     Active Substance: OXYCODONE
     Indication: Product used for unknown indication
  8. ACETAMINOPHEN [Concomitant]
     Active Substance: ACETAMINOPHEN
     Indication: Product used for unknown indication
  9. BC (ASPIRIN\CAFFEINE) [Concomitant]
     Active Substance: ASPIRIN\CAFFEINE
     Indication: Product used for unknown indication
  10. MEDROXYPROGESTERONE [Concomitant]
     Active Substance: MEDROXYPROGESTERONE
     Indication: Product used for unknown indication
  11. ACETA [Concomitant]
     Indication: Product used for unknown indication
  12. VIMOVO [Concomitant]
     Active Substance: ESOMEPRAZOLE MAGNESIUM\NAPROXEN
     Indication: Product used for unknown indication
  13. CELECOXIB [Concomitant]
     Active Substance: CELECOXIB
     Indication: Product used for unknown indication
  14. MYCOPHENOLATE MOFETIL\MYCOPHENOLATE MOFETIL HYDROCHLORIDE [Concomitant]
     Active Substance: MYCOPHENOLATE MOFETIL\MYCOPHENOLATE MOFETIL HYDROCHLORIDE
     Indication: Product used for unknown indication

REACTIONS (12)
  - Arthralgia [Not Recovered/Not Resolved]
  - Neck pain [Not Recovered/Not Resolved]
  - Pain of skin [Unknown]
  - Headache [Not Recovered/Not Resolved]
  - Furuncle [Unknown]
  - Abdominal pain upper [Unknown]
  - Diarrhoea [Unknown]
  - Constipation [Unknown]
  - Inflammatory marker increased [Unknown]
  - Blood test abnormal [Unknown]
  - Rheumatoid factor increased [Unknown]
  - Gastrointestinal disorder [Unknown]
